FAERS Safety Report 8535253-1 (Version None)
Quarter: 2012Q3

REPORT INFORMATION
  Report Type: 
  Country: None (occurrence: None)
  Receive Date: 20120725
  Receipt Date: 20120718
  Transmission Date: 20120928
  Serious: Yes (Other)
  Sender: FDA-Public Use
  Company Number: CN-009507513-1207CHN007736

PATIENT

DRUGS (1)
  1. MARVELON (IN ROMAN AND CHINESE) [Suspect]
     Indication: CONTRACEPTION
     Dosage: 1 DF, QD
     Route: 048

REACTIONS (1)
  - LOWER LIMB FRACTURE [None]
